FAERS Safety Report 10035476 (Version 7)
Quarter: 2015Q1

REPORT INFORMATION
  Report Type: Spontaneous
  Country: US (occurrence: US)
  Receive Date: 20140325
  Receipt Date: 20150217
  Transmission Date: 20150720
  Serious: Yes (Hospitalization, Other)
  Sender: FDA-Public Use
  Company Number: US-PFIZER INC-2014082919

PATIENT
  Age: 68 Year
  Sex: Male

DRUGS (4)
  1. SUTENT [Suspect]
     Active Substance: SUNITINIB MALATE
     Dosage: 25 MG, 1X/DAY, 4 WEEKS ON, 2 WEEKS OFF
     Route: 048
     Dates: start: 20140708
  2. SUTENT [Suspect]
     Active Substance: SUNITINIB MALATE
     Dosage: 25 MG, 1X/DAY, 4 WEEKS ON, 1 WEEK OFF
     Dates: start: 20150131
  3. SUTENT [Suspect]
     Active Substance: SUNITINIB MALATE
     Indication: NEOPLASM MALIGNANT
     Dosage: 50 MG, 1X/DAY, 4 WEEKS ON, 2 WEEKS OFF
     Route: 048
     Dates: start: 20140124
  4. SUTENT [Suspect]
     Active Substance: SUNITINIB MALATE
     Dosage: 25 MG, 1X/DAY, 4 WEEKS ON, 1 WEEK OFF
     Route: 048
     Dates: start: 20140124, end: 201501

REACTIONS (5)
  - Diabetic complication [Unknown]
  - Gout [Unknown]
  - Decreased appetite [Unknown]
  - Weight decreased [Unknown]
  - Blood pressure increased [Recovering/Resolving]

NARRATIVE: CASE EVENT DATE: 2014
